FAERS Safety Report 8825499 (Version 1)
Quarter: 2012Q4

REPORT INFORMATION
  Report Type: 
  Country: CN (occurrence: CN)
  Receive Date: 20121004
  Receipt Date: 20121004
  Transmission Date: 20130627
  Serious: Yes (Hospitalization)
  Sender: FDA-Public Use
  Company Number: CN-JNJFOC-20120912771

PATIENT
  Sex: Female

DRUGS (1)
  1. TYLENOL COLD [Suspect]
     Indication: PRODUCT USED FOR UNKNOWN INDICATION
     Route: 048
     Dates: start: 20090623, end: 20090623

REACTIONS (1)
  - Erythema multiforme [Recovering/Resolving]
